FAERS Safety Report 26051717 (Version 1)
Quarter: 2025Q4

REPORT INFORMATION
  Report Type: Spontaneous
  Country: US (occurrence: US)
  Receive Date: 20251117
  Receipt Date: 20251117
  Transmission Date: 20260117
  Serious: No
  Sender: CSL BEHRING
  Company Number: US-BEH-2025225946

PATIENT
  Sex: Female
  Weight: 72.562 kg

DRUGS (1)
  1. HIZENTRA [Suspect]
     Active Substance: HUMAN IMMUNOGLOBULIN G
     Indication: Immunodeficiency
     Dosage: 5 G, QW
     Route: 058

REACTIONS (3)
  - Product odour abnormal [Unknown]
  - Product with quality issue administered [Unknown]
  - Inadequate aseptic technique in manufacturing of product [Unknown]
